FAERS Safety Report 6459145-7 (Version None)
Quarter: 2009Q4

REPORT INFORMATION
  Report Type: 
  Country: None (occurrence: None)
  Receive Date: 20091125
  Receipt Date: 20091125
  Transmission Date: 20100525
  Serious: No
  Sender: FDA-Public Use
  Company Number: None

PATIENT
  Age: 33 Year
  Sex: Female

DRUGS (3)
  1. TUBERSOL [Suspect]
     Indication: TUBERCULIN TEST
     Dosage: NOT REPORTED, NR
     Dates: start: 20090223
  2. ZYRTEC [Concomitant]
  3. ZANTAC [Concomitant]

REACTIONS (4)
  - BODY TEMPERATURE INCREASED [None]
  - COUGH [None]
  - NAUSEA [None]
  - VOMITING [None]
